FAERS Safety Report 22121598 (Version 1)
Quarter: 2023Q1

REPORT INFORMATION
  Report Type: Spontaneous
  Country: US (occurrence: US)
  Receive Date: 20230321
  Receipt Date: 20230321
  Transmission Date: 20230418
  Serious: No
  Sender: FDA-Public Use
  Company Number: US-BAXTER-2023BAX014982

PATIENT
  Sex: Female

DRUGS (2)
  1. DIANEAL [Suspect]
     Active Substance: CALCIUM CHLORIDE\DEXTROSE\MAGNESIUM CHLORIDE\SODIUM CHLORIDE\SODIUM LACTATE
     Indication: End stage renal disease
     Dosage: UNK
     Route: 033
  2. METOPROLOL [Concomitant]
     Active Substance: METOPROLOL
     Indication: Hypertension
     Dosage: UNK
     Route: 065
     Dates: end: 202303

REACTIONS (6)
  - Weight decreased [Recovering/Resolving]
  - Abdominal rigidity [Recovering/Resolving]
  - Intra-abdominal fluid collection [Recovering/Resolving]
  - Incorrect drug administration rate [Unknown]
  - Abdominal distension [Recovering/Resolving]
  - Hypotension [Recovering/Resolving]
